FAERS Safety Report 16983415 (Version 1)
Quarter: 2019Q4

REPORT INFORMATION
  Report Type: Spontaneous
  Country: RU (occurrence: RU)
  Receive Date: 20191101
  Receipt Date: 20191101
  Transmission Date: 20200122
  Serious: Yes (Other)
  Sender: FDA-Public Use
  Company Number: RU-BAYER-2019-192813

PATIENT
  Age: 20 Year
  Sex: Female

DRUGS (1)
  1. DROSPIRENONE + ETHINYLESTRADIOL [Suspect]
     Active Substance: DROSPIRENONE\ETHINYL ESTRADIOL
     Route: 048

REACTIONS (5)
  - Heart rate increased [None]
  - Hyperlipidaemia [None]
  - Headache [None]
  - Atrioventricular block second degree [None]
  - Cardiac failure congestive [None]
